FAERS Safety Report 17283758 (Version 1)
Quarter: 2020Q1

REPORT INFORMATION
  Report Type: Report from Study
  Country: AR (occurrence: AR)
  Receive Date: 20200117
  Receipt Date: 20200117
  Transmission Date: 20200409
  Serious: Yes (Hospitalization)
  Sender: FDA-Public Use
  Company Number: AR-ACTELION-A-CH2018-181486

PATIENT
  Age: 26 Year
  Sex: Female
  Weight: 54 kg

DRUGS (3)
  1. VELETRI [Suspect]
     Active Substance: EPOPROSTENOL
     Dosage: 1 NG/KG, PER MIN
     Route: 042
     Dates: start: 20171112
  2. VELETRI [Suspect]
     Active Substance: EPOPROSTENOL
     Indication: PULMONARY ARTERIAL HYPERTENSION
     Dosage: UNK
     Route: 042
     Dates: start: 201711
  3. OPSUMIT [Concomitant]
     Active Substance: MACITENTAN
     Route: 048

REACTIONS (7)
  - Transplant evaluation [Recovering/Resolving]
  - Burning sensation [Recovering/Resolving]
  - Fatigue [Recovering/Resolving]
  - Vomiting [Recovering/Resolving]
  - Diarrhoea [Recovering/Resolving]
  - Intentional product use issue [Unknown]
  - Product supply issue [Unknown]

NARRATIVE: CASE EVENT DATE: 20181101
